FAERS Safety Report 8249289-1 (Version None)
Quarter: 2012Q2

REPORT INFORMATION
  Report Type: 
  Country: None (occurrence: None)
  Receive Date: 20120402
  Receipt Date: 20120323
  Transmission Date: 20120825
  Serious: Yes (Hospitalization)
  Sender: FDA-Public Use
  Company Number: US-BAYER-2012-028789

PATIENT
  Age: 44 Year
  Sex: Female

DRUGS (16)
  1. VICODIN [Concomitant]
  2. CELEXA [Concomitant]
  3. XANAX [Concomitant]
  4. AMBIEN [Concomitant]
  5. YAZ [Suspect]
  6. YASMIN [Suspect]
  7. DROSPIRENONE AND ETHINYL ESTRADIOL [Suspect]
  8. IRON [Concomitant]
  9. WELLBUTRIN [Concomitant]
  10. SYNTHROID [Concomitant]
  11. AMITIZA [Concomitant]
  12. CARISOPRODOL [Concomitant]
  13. DROSPIRENONE AND ETHINYL ESTRADIOL [Suspect]
  14. ROBAXIN [Concomitant]
  15. LEXAPRO [Concomitant]
  16. CITALOPRAM HYDROBROMIDE [Concomitant]

REACTIONS (1)
  - DEEP VEIN THROMBOSIS [None]
